FAERS Safety Report 6508631-X (Version None)
Quarter: 2009Q4

REPORT INFORMATION
  Report Type: 
  Country: None (occurrence: None)
  Receive Date: 20091221
  Receipt Date: 20091211
  Transmission Date: 20100525
  Serious: Yes (Hospitalization)
  Sender: FDA-Public Use
  Company Number: US-ELI_LILLY_AND_COMPANY-US200912003110

PATIENT
  Sex: Female

DRUGS (5)
  1. FORTEO [Suspect]
     Indication: OSTEOPOROSIS
     Dosage: 20 UG, DAILY (1/D)
     Dates: start: 20090801
  2. PROVERA [Concomitant]
     Dosage: UNK, 4/W
  3. HORMONES AND RELATED AGENTS [Concomitant]
     Dosage: UNK, 4/W
  4. PREVACID [Concomitant]
     Indication: GASTROOESOPHAGEAL REFLUX DISEASE
     Dosage: UNK, DAILY (1/D)
  5. ANTIBIOTICS [Concomitant]
     Indication: KIDNEY INFECTION
     Dosage: UNK, UNKNOWN

REACTIONS (2)
  - FALL [None]
  - HIP FRACTURE [None]
